FAERS Safety Report 23085697 (Version 1)
Quarter: 2023Q4

REPORT INFORMATION
  Report Type: Report from Study
  Country: US (occurrence: US)
  Receive Date: 20231019
  Receipt Date: 20231019
  Transmission Date: 20240110
  Serious: Yes (Other)
  Sender: FDA-Public Use
  Company Number: US-JAZZ PHARMACEUTICALS-2023-US-016536

PATIENT
  Age: 23 Year
  Sex: Female

DRUGS (7)
  1. XYWAV [Suspect]
     Active Substance: CALCIUM OXYBATE\MAGNESIUM OXYBATE\POTASSIUM OXYBATE\SODIUM OXYBATE
     Indication: Hypersomnia
     Dosage: 3G FOR 7 DAYS, 4GRAM FOR 7 DAYS, 5 GRAMS FOR 7 DAYS AND 6 GRAM FOR 7 DAYS BY MOUTH AT BEDTIME
  2. TIZANIDINE HYDROCHLORIDE [Concomitant]
     Active Substance: TIZANIDINE HYDROCHLORIDE
     Dosage: UNK
     Dates: start: 20230226
  3. METHYLPHENIDATE [Concomitant]
     Active Substance: METHYLPHENIDATE
     Dosage: 20 MILLIGRAM
     Dates: start: 20180101
  4. METHYLPHENIDATE [Concomitant]
     Active Substance: METHYLPHENIDATE
     Dosage: 10 MILLIGRAM
     Dates: start: 20180101
  5. CLARITIN [Concomitant]
     Active Substance: LORATADINE
  6. ACETAMINOPHEN [Concomitant]
     Active Substance: ACETAMINOPHEN
     Dosage: UNK
     Dates: start: 20230824
  7. DAYTIME COLD/FLU RELIEF [Concomitant]
     Indication: Product used for unknown indication

REACTIONS (9)
  - Eye haemorrhage [Unknown]
  - Eye contusion [Unknown]
  - Eye swelling [Unknown]
  - Fall [Unknown]
  - Fatigue [Unknown]
  - Tachycardia [Unknown]
  - Oropharyngeal pain [Unknown]
  - Nausea [Unknown]
  - Product dose omission issue [Unknown]

NARRATIVE: CASE EVENT DATE: 20230601
